FAERS Safety Report 6396581-1 (Version None)
Quarter: 2009Q4

REPORT INFORMATION
  Report Type: 
  Country: None (occurrence: None)
  Receive Date: 20091008
  Receipt Date: 20091008
  Transmission Date: 20100525
  Serious: No
  Sender: FDA-Public Use
  Company Number: None

PATIENT
  Age: 85 Year
  Sex: Male
  Weight: 78.0187 kg

DRUGS (3)
  1. LEVAQUIN [Suspect]
     Indication: TENDON DISORDER
     Dosage: 500 PO
     Route: 048
     Dates: start: 20090917, end: 20090920
  2. DEPO-MEDROL [Concomitant]
  3. ALLEGRA [Concomitant]

REACTIONS (3)
  - ARTHRALGIA [None]
  - PAIN IN EXTREMITY [None]
  - TENDON DISORDER [None]
